FAERS Safety Report 16347986 (Version 1)
Quarter: 2019Q2

REPORT INFORMATION
  Report Type: Spontaneous
  Country: US (occurrence: US)
  Receive Date: 20190523
  Receipt Date: 20190523
  Transmission Date: 20190711
  Serious: No
  Sender: FDA-Public Use
  Company Number: US-TARO-2018TAR00593

PATIENT
  Age: 62 Year
  Sex: Female
  Weight: 64.4 kg

DRUGS (1)
  1. TERCONAZOLE VAGINAL CREAM 0.8% [Suspect]
     Active Substance: TERCONAZOLE
     Indication: FUNGAL INFECTION
     Dosage: 1 DOSAGE UNITS, 1X/DAY
     Route: 067
     Dates: start: 20180723, end: 20180725

REACTIONS (4)
  - Accidental exposure to product [Recovered/Resolved]
  - Product quality issue [Recovered/Resolved]
  - Bacterial vulvovaginitis [Recovered/Resolved]
  - Underdose [Recovered/Resolved]

NARRATIVE: CASE EVENT DATE: 2018
